FAERS Safety Report 11804243 (Version 1)
Quarter: 2015Q4

REPORT INFORMATION
  Report Type: Spontaneous
  Country: US (occurrence: US)
  Receive Date: 20151204
  Receipt Date: 20151204
  Transmission Date: 20160305
  Serious: Yes (Hospitalization)
  Sender: FDA-Public Use
  Company Number: PHHY2015US156839

PATIENT
  Age: 17 Year
  Sex: Female

DRUGS (1)
  1. MINOCYCLINE\MINOCYCLINE HYDROCHLORIDE [Suspect]
     Active Substance: MINOCYCLINE\MINOCYCLINE HYDROCHLORIDE
     Indication: ACNE
     Route: 065

REACTIONS (3)
  - Vasculitis [Recovered/Resolved]
  - Neuropathy peripheral [Not Recovered/Not Resolved]
  - Infarction [Unknown]
